FAERS Safety Report 9214477 (Version 1)
Quarter: 2013Q2

REPORT INFORMATION
  Report Type: Spontaneous
  Country: FR (occurrence: FR)
  Receive Date: 20130405
  Receipt Date: 20130405
  Transmission Date: 20140414
  Serious: Yes (Death, Other)
  Sender: FDA-Public Use
  Company Number: FR-ROCHE-1209810

PATIENT
  Age: 51 Year
  Sex: Female

DRUGS (4)
  1. NEORECORMON [Suspect]
     Indication: HEPATITIS C
     Dosage: PRE-FILLED SYRINGE
     Route: 058
     Dates: end: 20130318
  2. PEGASYS [Suspect]
     Indication: HEPATITIS C
     Route: 058
     Dates: start: 20130111, end: 20130318
  3. COPEGUS [Suspect]
     Indication: HEPATITIS C
     Route: 048
     Dates: start: 20130111, end: 20130318
  4. VICTRELIS [Suspect]
     Indication: HEPATITIS C
     Route: 048
     Dates: start: 20130204, end: 20130318

REACTIONS (3)
  - Nausea [Unknown]
  - Abdominal pain [Unknown]
  - Sudden death [Fatal]
